FAERS Safety Report 5782418-8 (Version None)
Quarter: 2008Q2

REPORT INFORMATION
  Report Type: 
  Country: None (occurrence: None)
  Receive Date: 20080623
  Receipt Date: 20080612
  Transmission Date: 20081010
  Serious: Yes (Other)
  Sender: FDA-Public Use
  Company Number: PHFR2008GB00698

PATIENT
  Sex: Male

DRUGS (6)
  1. CLOZARIL [Suspect]
     Indication: SCHIZOPHRENIA
     Dosage: UNK
     Route: 048
     Dates: start: 20000619, end: 20080124
  2. CETRIZINE [Concomitant]
     Dosage: 10 MG
  3. CLONAZEPAM [Concomitant]
     Dosage: 1 MG (BD) AND 2 MG AT NIGHT
  4. OLANZAPINE [Concomitant]
     Dosage: 7.5 MG
  5. DEPAKOTE [Concomitant]
     Dosage: 1G BD
  6. ESCITALOPRAM [Concomitant]

REACTIONS (9)
  - AGGRESSION [None]
  - INFECTION [None]
  - LOWER RESPIRATORY TRACT INFECTION [None]
  - NEUTROPHIL COUNT DECREASED [None]
  - RASH [None]
  - SELF INJURIOUS BEHAVIOUR [None]
  - URINARY TRACT INFECTION [None]
  - WEIGHT DECREASED [None]
  - WHITE BLOOD CELL COUNT DECREASED [None]
